FAERS Safety Report 4747595-6 (Version None)
Quarter: 2005Q3

REPORT INFORMATION
  Report Type: 
  Country: None (occurrence: None)
  Receive Date: 20050818
  Receipt Date: 20041130
  Transmission Date: 20060218
  Serious: No
  Sender: FDA-Public Use
  Company Number: US-BRISTOL-MYERS SQUIBB COMPANY-12779435

PATIENT
  Sex: Male

DRUGS (1)
  1. TEQUIN [Suspect]

REACTIONS (1)
  - TESTICULAR SWELLING [None]
